FAERS Safety Report 8207773-0 (Version None)
Quarter: 2012Q1

REPORT INFORMATION
  Report Type: 
  Country: None (occurrence: None)
  Receive Date: 20120314
  Receipt Date: 20120307
  Transmission Date: 20120608
  Serious: Yes (Other)
  Sender: FDA-Public Use
  Company Number: US-SANOFI-AVENTIS-2012SA016020

PATIENT
  Sex: Male

DRUGS (4)
  1. LYRICA [Suspect]
  2. ATENOLOL [Suspect]
  3. NEURONTIN [Suspect]
  4. AMBIEN [Suspect]
     Indication: SLEEP DISORDER

REACTIONS (3)
  - NECK PAIN [None]
  - NERVOUS SYSTEM DISORDER [None]
  - PARALYSIS [None]
